FAERS Safety Report 19651603 (Version 1)
Quarter: 2021Q3

REPORT INFORMATION
  Report Type: Spontaneous
  Country: US (occurrence: US)
  Receive Date: 20210802
  Receipt Date: 20210802
  Transmission Date: 20211014
  Serious: Yes (Hospitalization, Other)
  Sender: FDA-Public Use
  Company Number: None

PATIENT
  Age: 95 Year
  Sex: Female
  Weight: 74.84 kg

DRUGS (19)
  1. ALBUTEROL. [Concomitant]
     Active Substance: ALBUTEROL
  2. CRANBERRY URINARY COMFORT [Concomitant]
  3. LEVOTHYROXINE. [Concomitant]
     Active Substance: LEVOTHYROXINE
  4. NORVASC [Concomitant]
     Active Substance: AMLODIPINE BESYLATE
  5. ZOCOR [Concomitant]
     Active Substance: SIMVASTATIN
  6. PROLIA [Concomitant]
     Active Substance: DENOSUMAB
  7. LEVEMIR [Concomitant]
     Active Substance: INSULIN DETEMIR
  8. VITAMIN D [Concomitant]
     Active Substance: VITAMIN D NOS
  9. ASPIRIN. [Concomitant]
     Active Substance: ASPIRIN
  10. OCCUVITE [Concomitant]
  11. ALIVE [Concomitant]
     Active Substance: BENZALKONIUM CHLORIDE\SODIUM CHLORIDE
  12. LASIX [Concomitant]
     Active Substance: FUROSEMIDE
  13. EXEMESTANE. [Concomitant]
     Active Substance: EXEMESTANE
  14. POTASSIUM [Concomitant]
     Active Substance: POTASSIUM
  15. BUDESONIDE. [Concomitant]
     Active Substance: BUDESONIDE
  16. MELATONIN [Concomitant]
     Active Substance: MELATONIN
  17. BIOTIN [Concomitant]
     Active Substance: BIOTIN
  18. IBRANCE [Suspect]
     Active Substance: PALBOCICLIB
     Indication: BREAST CANCER FEMALE
     Dosage: 75MG QDX21D, 7 OFF BY MOUTH
     Route: 048
     Dates: start: 20210708
  19. CARVEDILOL. [Concomitant]
     Active Substance: CARVEDILOL

REACTIONS (1)
  - Cerebrovascular accident [None]
